FAERS Safety Report 4459264-0 (Version None)
Quarter: 2004Q3

REPORT INFORMATION
  Report Type: 
  Country: None (occurrence: None)
  Receive Date: 20040922
  Receipt Date: 20040922
  Transmission Date: 20050211
  Serious: Yes (Other)
  Sender: FDA-Public Use
  Company Number: None

PATIENT
  Sex: Male
  Weight: 128.2 kg

DRUGS (9)
  1. FORMOTEROL  12MCG CAPSULE [Suspect]
     Indication: ASTHMA
     Dosage: 12 MCG BID ORAL
     Route: 048
     Dates: start: 20040712, end: 20040830
  2. ALBUTEROL [Concomitant]
  3. FEXOFENADINE HCL [Concomitant]
  4. FLUTICASONE PROPIONATE [Concomitant]
  5. MONTELUKAST [Concomitant]
  6. LOVASATIN [Concomitant]
  7. OMEPRAZOLE [Concomitant]
  8. PHENYTOIN [Concomitant]
  9. PREDNISONE [Concomitant]

REACTIONS (1)
  - FATIGUE [None]
